FAERS Safety Report 5144772-X (Version None)
Quarter: 2006Q4

REPORT INFORMATION
  Report Type: 
  Country: None (occurrence: None)
  Receive Date: 20061103
  Receipt Date: 20061103
  Transmission Date: 20070319
  Serious: Yes (Hospitalization)
  Sender: FDA-Public Use
  Company Number: None

PATIENT
  Sex: Male
  Weight: 112 kg

DRUGS (2)
  1. CYCLOPHOSPHAMIDE [Suspect]
     Dosage: 2300 MG
     Dates: end: 20060419
  2. CYTARABINE [Suspect]
     Dosage: 13800 MG
     Dates: end: 20060421

REACTIONS (5)
  - ATRIAL FIBRILLATION [None]
  - CHEST PAIN [None]
  - FEBRILE NEUTROPENIA [None]
  - HYPOTENSION [None]
  - TROPONIN I INCREASED [None]
